FAERS Safety Report 4712723-5 (Version None)
Quarter: 2005Q3

REPORT INFORMATION
  Report Type: 
  Country: None (occurrence: None)
  Receive Date: 20050701
  Receipt Date: 20050427
  Transmission Date: 20060218
  Serious: Yes (Other)
  Sender: FDA-Public Use
  Company Number: 2005067530

PATIENT
  Age: 41 Year
  Sex: Female
  Weight: 72.5755 kg

DRUGS (1)
  1. ZOLOFT [Suspect]
     Indication: POSTPARTUM DEPRESSION
     Dosage: ORAL
     Route: 048
     Dates: start: 20050101

REACTIONS (3)
  - NASOPHARYNGITIS [None]
  - STEVENS-JOHNSON SYNDROME [None]
  - VAGINAL LESION [None]
